FAERS Safety Report 8264949-4 (Version None)
Quarter: 2012Q2

REPORT INFORMATION
  Report Type: 
  Country: None (occurrence: None)
  Receive Date: 20120406
  Receipt Date: 20120327
  Transmission Date: 20120825
  Serious: Yes (Other)
  Sender: FDA-Public Use
  Company Number: GB-JNJFOC-20111003013

PATIENT
  Age: 48 Year
  Sex: Female

DRUGS (4)
  1. REMICADE [Suspect]
     Dosage: AT WEEK 0, 2, 6
     Route: 042
     Dates: start: 20090212
  2. PREDNISOLONE [Concomitant]
     Dosage: DOSE REPORTED AS INTERMITTENT
  3. REMICADE [Suspect]
     Indication: HIDRADENITIS
     Route: 042
     Dates: end: 20110801
  4. METHOTREXATE [Concomitant]
     Indication: SYSTEMIC LUPUS ERYTHEMATOSUS
     Dosage: DOSE REPORTED AS 7.5 MG A WEEK } 15 MG A WEEK
     Dates: start: 20071001

REACTIONS (2)
  - NON-HODGKIN'S LYMPHOMA [None]
  - BREAST CANCER [None]
